FAERS Safety Report 8114780-5 (Version None)
Quarter: 2012Q1

REPORT INFORMATION
  Report Type: 
  Country: None (occurrence: None)
  Receive Date: 20120206
  Receipt Date: 20120124
  Transmission Date: 20120608
  Serious: Yes (Hospitalization)
  Sender: FDA-Public Use
  Company Number: US-ELI_LILLY_AND_COMPANY-US201106003018

PATIENT
  Age: 72 Year
  Sex: Female

DRUGS (4)
  1. FORTEO [Suspect]
     Dosage: 20 UG, QD
     Route: 065
  2. DIURETICS [Concomitant]
     Dosage: UNK
     Route: 065
  3. FORTEO [Suspect]
     Dosage: 20 UG, QD
  4. FORTEO [Suspect]
     Indication: OSTEOPOROSIS
     Dosage: 20 UG, QD
     Dates: start: 20110201

REACTIONS (9)
  - PLEURISY [None]
  - PNEUMONIA [None]
  - PRURITUS [None]
  - STRESS [None]
  - BLOOD CALCIUM INCREASED [None]
  - BRONCHITIS [None]
  - ABDOMINAL DISTENSION [None]
  - ALOPECIA [None]
  - EMPHYSEMA [None]
